FAERS Safety Report 8369708-X (Version None)
Quarter: 2012Q2

REPORT INFORMATION
  Report Type: 
  Country: None (occurrence: None)
  Receive Date: 20120518
  Receipt Date: 20120508
  Transmission Date: 20120825
  Serious: Yes (Hospitalization, Other)
  Sender: FDA-Public Use
  Company Number: AU-BRISTOL-MYERS SQUIBB COMPANY-16567364

PATIENT
  Age: 55 Year
  Sex: Male

DRUGS (4)
  1. CARBOPLATIN [Suspect]
     Indication: NON-SMALL CELL LUNG CANCER
     Route: 042
     Dates: start: 20120224
  2. PLACEBO [Suspect]
     Indication: NON-SMALL CELL LUNG CANCER
     Route: 042
  3. BLINDED: IPILIMUMAB [Suspect]
     Indication: NON-SMALL CELL LUNG CANCER
     Dosage: LAST DOSE RECEIVED ON 26-APR-2012
     Route: 042
  4. PACLITAXEL [Suspect]
     Indication: NON-SMALL CELL LUNG CANCER
     Route: 042
     Dates: start: 20120224

REACTIONS (19)
  - AUTOIMMUNE DISORDER [None]
  - BLOOD CHLORIDE DECREASED [None]
  - COLITIS [None]
  - DIARRHOEA [None]
  - THYROXINE FREE INCREASED [None]
  - GLOBULINS INCREASED [None]
  - DEHYDRATION [None]
  - BLOOD THYROID STIMULATING HORMONE DECREASED [None]
  - GAMMA-GLUTAMYLTRANSFERASE INCREASED [None]
  - DECREASED APPETITE [None]
  - RENAL FAILURE ACUTE [None]
  - BLOOD CALCIUM INCREASED [None]
  - BLOOD BILIRUBIN INCREASED [None]
  - HYPERGLYCAEMIA [None]
  - HAEMATOCRIT DECREASED [None]
  - BLOOD SODIUM DECREASED [None]
  - HAEMOGLOBIN DECREASED [None]
  - ANION GAP INCREASED [None]
  - C-REACTIVE PROTEIN INCREASED [None]
